FAERS Safety Report 9321885 (Version 1)
Quarter: 2013Q2

REPORT INFORMATION
  Report Type: Report from Study
  Country: JP (occurrence: JP)
  Receive Date: 20130531
  Receipt Date: 20130531
  Transmission Date: 20140414
  Serious: Yes (Other)
  Sender: FDA-Public Use
  Company Number: JP-BAYER-2013-064074

PATIENT
  Age: 67 Year
  Sex: Female
  Weight: 59 kg

DRUGS (16)
  1. SORAFENIB (RAF KINASE INHIBITOR) [Suspect]
     Indication: HEPATOCELLULAR CARCINOMA
     Dosage: 400MG/DAY
     Route: 048
     Dates: start: 20120307, end: 20120531
  2. SORAFENIB (RAF KINASE INHIBITOR) [Suspect]
     Indication: HEPATOCELLULAR CARCINOMA
     Dosage: 800MG/DAY
     Route: 048
     Dates: start: 20120601, end: 20120711
  3. SORAFENIB (RAF KINASE INHIBITOR) [Suspect]
     Indication: HEPATOCELLULAR CARCINOMA
     Dosage: 400MG/DAY
     Route: 048
     Dates: start: 20120719, end: 20120816
  4. URSO [Concomitant]
     Dosage: DAILY DOSE 600 MG
     Route: 048
  5. MUCOSTA [Concomitant]
     Dosage: DAILY DOSE 300 MG
     Route: 048
  6. BLOPRESS [Concomitant]
     Dosage: DAILY DOSE 4 MG
     Route: 048
  7. THYRADIN S [Concomitant]
     Dosage: DAILY DOSE 50 ?G
     Route: 048
  8. DEPAS [Concomitant]
     Dosage: DAILY DOSE .5 MG
     Route: 048
  9. PARIET [Concomitant]
     Dosage: DAILY DOSE 10 MG
     Route: 048
  10. WARFARIN [Concomitant]
     Dosage: DAILY DOSE 1.25 MG
     Route: 048
  11. WARFARIN [Concomitant]
     Dosage: DAILY DOSE .5 MG
     Route: 048
     Dates: start: 20120621, end: 20120712
  12. WARFARIN [Concomitant]
     Dosage: DAILY DOSE 1 MG
     Route: 048
     Dates: start: 20120713, end: 20120802
  13. WARFARIN [Concomitant]
     Dosage: DAILY DOSE .5 MG
     Route: 048
     Dates: start: 20120803
  14. AMINOLEBAN EN [Concomitant]
     Dosage: DAILY DOSE 100 G
     Route: 048
  15. ALDACTONE A [Concomitant]
     Dosage: DAILY DOSE 25 MG
     Route: 048
  16. UREPEARL [Concomitant]
     Indication: PROPHYLAXIS
     Dosage: UNK
     Route: 061
     Dates: start: 20120210, end: 20120816

REACTIONS (6)
  - Ascites [Recovering/Resolving]
  - Palmar-plantar erythrodysaesthesia syndrome [Recovered/Resolved]
  - Liver disorder [Recovering/Resolving]
  - Amylase increased [Recovered/Resolved]
  - Diarrhoea [Recovered/Resolved]
  - Hypophosphataemia [Recovered/Resolved]
